FAERS Safety Report 9378105 (Version 2)
Quarter: 2013Q3

REPORT INFORMATION
  Report Type: Spontaneous
  Country: US (occurrence: US)
  Receive Date: 20130701
  Receipt Date: 20130916
  Transmission Date: 20140515
  Serious: Yes (Hospitalization)
  Sender: FDA-Public Use
  Company Number: US-009507513-1306USA014565

PATIENT
  Sex: Female
  Weight: 66.21 kg

DRUGS (1)
  1. NUVARING [Suspect]
     Indication: CONTRACEPTION
     Dosage: UNK
     Route: 067
     Dates: start: 201012, end: 201107

REACTIONS (6)
  - Deep vein thrombosis [Unknown]
  - Deep vein thrombosis [Unknown]
  - Vaginal haemorrhage [Unknown]
  - Contusion [Unknown]
  - Thrombolysis [Unknown]
  - Thrombolysis [Unknown]
